FAERS Safety Report 7466431-0 (Version None)
Quarter: 2011Q2

REPORT INFORMATION
  Report Type: 
  Country: None (occurrence: None)
  Receive Date: 20110509
  Receipt Date: 20100813
  Transmission Date: 20111010
  Serious: No
  Sender: FDA-Public Use
  Company Number: US-ALEXION-A201000996

PATIENT

DRUGS (10)
  1. NIFEREX                            /01485601/ [Concomitant]
     Dosage: 50 MG, BID
     Route: 048
  2. TEMAZ [Concomitant]
     Indication: INSOMNIA
     Dosage: 30 MG, PRN
     Route: 048
  3. CHLORPROMAZINE HYDROCHLORIDE [Concomitant]
     Dosage: 50 MG, PRN AT BEDTIME
  4. SOLIRIS [Suspect]
     Indication: PAROXYSMAL NOCTURNAL HAEMOGLOBINURIA
     Dosage: 600 MG, QW
     Route: 042
     Dates: start: 10081016, end: 20081106
  5. CELEXA [Concomitant]
     Indication: AFFECTIVE DISORDER
     Dosage: 20 MG, QD
     Route: 048
  6. FOLIC ACID [Concomitant]
     Indication: MEDICAL DIET
     Dosage: 1 MG, QD
  7. HYDROXYZINE [Concomitant]
     Indication: PRURITUS
     Dosage: 25 MG, Q6HR PRN
     Route: 048
  8. NEXIUM [Concomitant]
     Dosage: 40 MG, QD
     Route: 048
  9. BENZTROPINE MESYLATE [Concomitant]
     Dosage: 1 MG, 1-2 TABLETS AT BEDTIME
     Route: 048
  10. SOLIRIS [Suspect]
     Dosage: 900 MG, Q2W
     Route: 042
     Dates: start: 20081113

REACTIONS (3)
  - DYSPHAGIA [None]
  - HAEMATURIA [None]
  - BACK PAIN [None]
